FAERS Safety Report 15616313 (Version 1)
Quarter: 2018Q4

REPORT INFORMATION
  Report Type: Spontaneous
  Country: CA (occurrence: CA)
  Receive Date: 20181114
  Receipt Date: 20181114
  Transmission Date: 20190205
  Serious: Yes (Other)
  Sender: FDA-Public Use
  Company Number: CA-GLAXOSMITHKLINE-CA2018GSK202925

PATIENT
  Age: 60 Year
  Sex: Female

DRUGS (1)
  1. HABITROL [Suspect]
     Active Substance: NICOTINE
     Indication: SMOKING CESSATION THERAPY
     Dosage: UNK
     Dates: start: 2018

REACTIONS (3)
  - Cerebellar stroke [Unknown]
  - Nightmare [Not Recovered/Not Resolved]
  - Tremor [Not Recovered/Not Resolved]
